FAERS Safety Report 20076612 (Version 1)
Quarter: 2021Q4

REPORT INFORMATION
  Report Type: Spontaneous
  Country: US (occurrence: None)
  Receive Date: 20211115
  Receipt Date: 20211115
  Transmission Date: 20220303
  Serious: No
  Sender: FDA-Public Use
  Company Number: None

PATIENT

DRUGS (2)
  1. DEVICE [Suspect]
     Active Substance: DEVICE
  2. PROPOFOL [Suspect]
     Active Substance: PROPOFOL

REACTIONS (2)
  - Product physical issue [None]
  - Product packaging issue [None]
